FAERS Safety Report 8385261 (Version 2)
Quarter: 2015Q1

REPORT INFORMATION
  Report Type: Report from Study
  Country: US (occurrence: US)
  Receive Date: 20120202
  Receipt Date: 20150227
  Transmission Date: 20150721
  Serious: Yes (Death)
  Sender: FDA-Public Use
  Company Number: US-ROCHE-1035774

PATIENT
  Sex: Male

DRUGS (7)
  1. CARBOPLATIN. [Concomitant]
     Active Substance: CARBOPLATIN
     Route: 042
  2. BENADRYL [Concomitant]
     Active Substance: DIPHENHYDRAMINE HYDROCHLORIDE
     Route: 042
  3. TAXOL [Concomitant]
     Active Substance: PACLITAXEL
     Route: 042
  4. PEGFILGRASTIM [Concomitant]
     Active Substance: PEGFILGRASTIM
     Route: 058
  5. AVASTIN [Suspect]
     Active Substance: BEVACIZUMAB
     Indication: MALIGNANT RESPIRATORY TRACT NEOPLASM
     Route: 042
     Dates: start: 20070305
  6. TAGAMET [Concomitant]
     Active Substance: CIMETIDINE
     Route: 042
  7. ALOXI [Concomitant]
     Active Substance: PALONOSETRON HYDROCHLORIDE
     Route: 042

REACTIONS (12)
  - Pain in extremity [Unknown]
  - Malaise [Unknown]
  - Cyanosis [Unknown]
  - Epistaxis [Unknown]
  - Oral pain [Unknown]
  - Death [Fatal]
  - Constipation [Unknown]
  - Fatigue [Unknown]
  - Erythema [Unknown]
  - Clubbing [Unknown]
  - Peripheral swelling [Unknown]
  - Off label use [Unknown]
